FAERS Safety Report 7681145-X (Version None)
Quarter: 2011Q3

REPORT INFORMATION
  Report Type: 
  Country: None (occurrence: None)
  Receive Date: 20110812
  Receipt Date: 20110809
  Transmission Date: 20111222
  Serious: No
  Sender: FDA-Public Use
  Company Number: US-PFIZER INC-2011119318

PATIENT
  Sex: Male

DRUGS (5)
  1. LAMOTRIGINE [Concomitant]
     Dosage: 200 MG, 2X/DAY
  2. CONCERTA [Concomitant]
     Dosage: 27 MG, AM
  3. PRISTIQ [Suspect]
     Indication: DEPRESSION
     Dosage: 50MG
     Route: 048
  4. SEROQUEL [Concomitant]
     Dosage: 50 MG, HS
  5. XANAX [Concomitant]
     Dosage: 1 MG, 2X/DAY

REACTIONS (2)
  - DRUG INEFFECTIVE [None]
  - CONSTIPATION [None]
